FAERS Safety Report 11382011 (Version 1)
Quarter: 2015Q3

REPORT INFORMATION
  Report Type: Spontaneous
  Country: US (occurrence: US)
  Receive Date: 20150811
  Receipt Date: 20150811
  Transmission Date: 20151125
  Serious: No
  Sender: FDA-Public Use
  Company Number: US-ELI_LILLY_AND_COMPANY-US200910003148

PATIENT
  Age: 48 Year
  Sex: Male

DRUGS (5)
  1. BUPROPION. [Concomitant]
     Active Substance: BUPROPION
     Dosage: 150 MG, DAILY (1/D)
     Route: 065
  2. QUINAPRIL [Concomitant]
     Active Substance: QUINAPRIL\QUINAPRIL HYDROCHLORIDE
     Dosage: 2.5 MG, DAILY (1/D)
     Route: 065
  3. TADALAFIL [Suspect]
     Active Substance: TADALAFIL
     Indication: ERECTILE DYSFUNCTION
     Dosage: 10 MG, AS NEEDED
     Route: 065
     Dates: start: 2008
  4. PRAVASTATIN [Concomitant]
     Active Substance: PRAVASTATIN\PRAVASTATIN SODIUM
     Dosage: 80 MG, DAILY (1/D)
     Route: 065
  5. TRICOR [Concomitant]
     Active Substance: FENOFIBRATE
     Dosage: 145 MG, DAILY (1/D)
     Route: 065

REACTIONS (4)
  - Intentional product misuse [Unknown]
  - Headache [Unknown]
  - Drug ineffective [Unknown]
  - Flushing [Unknown]

NARRATIVE: CASE EVENT DATE: 2009
